FAERS Safety Report 12786104 (Version 2)
Quarter: 2016Q4

REPORT INFORMATION
  Report Type: Spontaneous
  Country: ES (occurrence: ES)
  Receive Date: 20160927
  Receipt Date: 20161026
  Transmission Date: 20170207
  Serious: Yes (Other)
  Sender: FDA-Public Use
  Company Number: ES-PFIZER INC-2016445425

PATIENT
  Sex: Female
  Weight: 70 kg

DRUGS (1)
  1. DUAVIVE [Suspect]
     Active Substance: BAZEDOXIFENE ACETATE\ESTROGENS, CONJUGATED
     Indication: HORMONE LEVEL ABNORMAL
     Dosage: 1 DF, 1X/DAY (IN THE MORNING)
     Route: 048

REACTIONS (5)
  - Pharyngitis bacterial [Recovered/Resolved]
  - Spondylolisthesis [Unknown]
  - Back pain [Unknown]
  - Pyrexia [Recovered/Resolved]
  - Bronchitis bacterial [Recovered/Resolved]

NARRATIVE: CASE EVENT DATE: 201609
